FAERS Safety Report 10098953 (Version 1)
Quarter: 2014Q2

REPORT INFORMATION
  Report Type: Spontaneous
  Country: US (occurrence: US)
  Receive Date: 20140423
  Receipt Date: 20140423
  Transmission Date: 20141212
  Serious: No
  Sender: FDA-Public Use
  Company Number: US-009507513-1404USA008585

PATIENT
  Age: 72 Year
  Sex: Female

DRUGS (3)
  1. TICE BCG LIVE [Suspect]
     Indication: BLADDER CANCER
     Dosage: ROUTE BLADDER, ONE WEEKLY FOR 6 WEEKS THEN WAIT 6 MONTHS
     Dates: start: 20130920
  2. TICE BCG LIVE [Suspect]
     Dosage: ROUTE BLADDER, ONE WEEKLY FOR 3 WEEKS THEN WAIT SIX MONTHS
  3. TICE BCG LIVE [Suspect]
     Dosage: ROUTE BLADDER, ONCE A WEEK FOR 3 WEEKS AND WAIT SIX MONTHS

REACTIONS (2)
  - Influenza like illness [Unknown]
  - Pyrexia [Recovered/Resolved]
